FAERS Safety Report 5233236-0 (Version None)
Quarter: 2007Q1

REPORT INFORMATION
  Report Type: 
  Country: None (occurrence: None)
  Receive Date: 20070206
  Receipt Date: 20070124
  Transmission Date: 20070707
  Serious: Yes (Hospitalization)
  Sender: FDA-Public Use
  Company Number: CERZ-11493

PATIENT
  Age: 55 Year
  Sex: Female
  Weight: 66.7 kg

DRUGS (1)
  1. CEREZYME [Suspect]
     Indication: GAUCHER'S DISEASE
     Dosage: 4000 UNITS Q2WKS IV
     Route: 042

REACTIONS (4)
  - DEHYDRATION [None]
  - PAIN [None]
  - SYNOVIAL CYST [None]
  - WOUND INFECTION [None]
